FAERS Safety Report 18703041 (Version 1)
Quarter: 2021Q1

REPORT INFORMATION
  Report Type: Spontaneous
  Country: US (occurrence: US)
  Receive Date: 20210105
  Receipt Date: 20210105
  Transmission Date: 20210419
  Serious: No
  Sender: FDA-Public Use
  Company Number: US-MYLANLABS-2020M1097171

PATIENT
  Sex: Female
  Weight: 68 kg

DRUGS (1)
  1. METHIMAZOLE TABLETS, USP [Suspect]
     Active Substance: METHIMAZOLE
     Indication: BASEDOW^S DISEASE
     Dosage: UNK UNK, TID
     Route: 048

REACTIONS (10)
  - Symptom recurrence [Unknown]
  - Body temperature decreased [Unknown]
  - Thyroid hormones increased [Unknown]
  - Anxiety [Unknown]
  - Laboratory test abnormal [Unknown]
  - Blood thyroid stimulating hormone decreased [Unknown]
  - Heart rate increased [Unknown]
  - Weight decreased [Unknown]
  - Blood pressure increased [Unknown]
  - Hyperhidrosis [Unknown]
